FAERS Safety Report 11076884 (Version 2)
Quarter: 2015Q2

REPORT INFORMATION
  Report Type: Spontaneous
  Country: US (occurrence: US)
  Receive Date: 20150429
  Receipt Date: 20150526
  Transmission Date: 20150821
  Serious: No
  Sender: FDA-Public Use
  Company Number: US-JNJFOC-20150305272

PATIENT
  Age: 46 Year
  Sex: Male
  Weight: 113.4 kg

DRUGS (3)
  1. IMODIUM A-D [Suspect]
     Active Substance: LOPERAMIDE HYDROCHLORIDE
     Indication: DIARRHOEA
     Dosage: THE PATIENT WAS TREATED WITH 30ML, 15 ML, 15 ML IN EVERY 2 HOURS
     Route: 048
     Dates: start: 20150303, end: 20150303
  2. IMODIUM A-D [Suspect]
     Active Substance: LOPERAMIDE HYDROCHLORIDE
     Indication: DIARRHOEA
     Dosage: THE PATIENT WAS TREATED WITH 30ML, 15 ML, 15 ML IN EVERY 2 HOURS
     Route: 048
     Dates: start: 20150303, end: 20150303
  3. IMODIUM A-D [Suspect]
     Active Substance: LOPERAMIDE HYDROCHLORIDE
     Indication: DIARRHOEA
     Dosage: THE PATIENT WAS TREATED WITH 30ML, 15 ML, 15 ML IN EVERY 2 HOURS
     Route: 048
     Dates: start: 20150303, end: 20150303

REACTIONS (1)
  - Drug ineffective [Unknown]
